FAERS Safety Report 20028977 (Version 1)
Quarter: 2021Q4

REPORT INFORMATION
  Report Type: Spontaneous
  Country: US (occurrence: US)
  Receive Date: 20211103
  Receipt Date: 20211103
  Transmission Date: 20220304
  Serious: No
  Sender: FDA-Public Use
  Company Number: US-RVL_Pharmaceuticals-USA-POI0573202100350

PATIENT
  Age: 57 Year
  Sex: Female

DRUGS (4)
  1. UPNEEQ [Suspect]
     Active Substance: OXYMETAZOLINE HYDROCHLORIDE
     Indication: Eyelid ptosis
     Dosage: OD
     Route: 047
     Dates: start: 20210901, end: 20210901
  2. RESTASIS [Concomitant]
     Active Substance: CYCLOSPORINE
     Indication: Dry eye
     Route: 047
  3. DUPIXENT [Concomitant]
     Active Substance: DUPILUMAB
     Indication: Eczema
     Route: 058
  4. EYE NUMBING AGENT [Concomitant]
     Indication: Ophthalmological examination
     Route: 047
     Dates: start: 20210901, end: 20210901

REACTIONS (2)
  - Mydriasis [Unknown]
  - Drug ineffective [Recovered/Resolved]

NARRATIVE: CASE EVENT DATE: 20210901
